FAERS Safety Report 10921593 (Version 1)
Quarter: 2015Q1

REPORT INFORMATION
  Report Type: Spontaneous
  Country: ES (occurrence: None)
  Receive Date: 20150312
  Receipt Date: 20150312
  Transmission Date: 20150721
  Serious: Yes (Disabling, Other)
  Sender: FDA-Public Use
  Company Number: 2270714

PATIENT
  Age: 82 Year
  Sex: Male

DRUGS (3)
  1. CAPECITABINE. [Suspect]
     Active Substance: CAPECITABINE
     Indication: ADENOCARCINOMA OF COLON
     Dosage: CYCLICAL
  2. RALTITREXED DISODIUM [Suspect]
     Active Substance: RALTITREXED
     Indication: ADENOCARCINOMA OF COLON
     Dosage: CYCLICAL
     Dates: start: 20100304
  3. OXALIPLATIN. [Suspect]
     Active Substance: OXALIPLATIN
     Indication: ADENOCARCINOMA OF COLON
     Dosage: CYCLICAL

REACTIONS (7)
  - Gait disturbance [None]
  - Fall [None]
  - Hepatotoxicity [None]
  - Back pain [None]
  - Neoplasm progression [None]
  - Neurotoxicity [None]
  - Diarrhoea [None]
